FAERS Safety Report 25253635 (Version 3)
Quarter: 2025Q3

REPORT INFORMATION
  Report Type: Report from Study
  Country: US (occurrence: US)
  Receive Date: 20250430
  Receipt Date: 20250908
  Transmission Date: 20251020
  Serious: No
  Sender: SUNOVION
  Company Number: US-SUMITOMO PHARMA SWITZERLAND GMBH-2025SPA004128

PATIENT
  Age: 69 Year
  Sex: Male

DRUGS (2)
  1. ORGOVYX [Suspect]
     Active Substance: RELUGOLIX
     Indication: Prostate cancer
     Route: 048
  2. ORGOVYX [Suspect]
     Active Substance: RELUGOLIX
     Dosage: 120 MG, QD
     Route: 048
     Dates: start: 20250108

REACTIONS (10)
  - Burning sensation [Unknown]
  - Muscle fatigue [Unknown]
  - Chills [Unknown]
  - Piloerection [Unknown]
  - Malaise [Unknown]
  - Back pain [Unknown]
  - Neck pain [Unknown]
  - Fatigue [Unknown]
  - Depression [Unknown]
  - Arthritis [Unknown]
